FAERS Safety Report 10173348 (Version 2)
Quarter: 2014Q2

REPORT INFORMATION
  Report Type: Spontaneous
  Country: US (occurrence: US)
  Receive Date: 20140515
  Receipt Date: 20140520
  Transmission Date: 20141212
  Serious: No
  Sender: FDA-Public Use
  Company Number: US-PFIZER INC-2014130832

PATIENT
  Sex: Female

DRUGS (2)
  1. ALTACE [Suspect]
     Indication: BLOOD PRESSURE
     Dosage: STRENGTH 5 MG
     Route: 048
  2. ALTACE [Suspect]
     Dosage: STRENGTH 2.5 MG
     Route: 048

REACTIONS (3)
  - Dizziness [Unknown]
  - Feeling abnormal [Unknown]
  - Drug effect variable [Unknown]
